FAERS Safety Report 8268028-1 (Version None)
Quarter: 2012Q2

REPORT INFORMATION
  Report Type: 
  Country: None (occurrence: None)
  Receive Date: 20120409
  Receipt Date: 20120330
  Transmission Date: 20120825
  Serious: Yes (Hospitalization)
  Sender: FDA-Public Use
  Company Number: US-MPIJNJ-2011-04493

PATIENT
  Age: 56 Year
  Sex: Female

DRUGS (4)
  1. VELCADE [Suspect]
     Indication: CARDIAC AMYLOIDOSIS
     Dosage: 1.0 MG/M2, CYCLIC
     Route: 058
     Dates: start: 20110621
  2. LASIX [Concomitant]
     Indication: PRODUCT USED FOR UNKNOWN INDICATION
  3. DECADRON [Suspect]
     Indication: CARDIAC AMYLOIDOSIS
     Dosage: 20 MG, CYCLIC
     Route: 048
     Dates: start: 20110621
  4. ALDACTONE [Concomitant]
     Indication: PRODUCT USED FOR UNKNOWN INDICATION

REACTIONS (4)
  - SEPTIC SHOCK [None]
  - INFECTIOUS PERITONITIS [None]
  - INTESTINAL PERFORATION [None]
  - CONSTIPATION [None]
